FAERS Safety Report 19452953 (Version 1)
Quarter: 2021Q2

REPORT INFORMATION
  Report Type: Spontaneous
  Country: GB (occurrence: GB)
  Receive Date: 20210623
  Receipt Date: 20210623
  Transmission Date: 20210717
  Serious: Yes (Death, Hospitalization, Other)
  Sender: FDA-Public Use
  Company Number: GB-LUPIN PHARMACEUTICALS INC.-2021-10049

PATIENT
  Age: 34 Year
  Sex: Female

DRUGS (1)
  1. MISOPROSTOL. [Suspect]
     Active Substance: MISOPROSTOL
     Indication: INDUCED LABOUR
     Dosage: UNK
     Route: 065
     Dates: start: 202002

REACTIONS (3)
  - Maternal exposure during pregnancy [Fatal]
  - Uterine rupture [Fatal]
  - Overdose [Fatal]

NARRATIVE: CASE EVENT DATE: 202002
